FAERS Safety Report 8408926 (Version 2)
Quarter: 2012Q4

REPORT INFORMATION
  Report Type: 
  Country: GB (occurrence: GB)
  Receive Date: 20120216
  Receipt Date: 20120828
  Transmission Date: 20130627
  Serious: Yes (Disabling, Other)
  Sender: FDA-Public Use
  Company Number: GB-SANOFI-AVENTIS-2012SA009157

PATIENT
  Age: 56 Year
  Sex: Female
  Weight: 58 kg

DRUGS (4)
  1. ZOLPIDEM [Suspect]
     Indication: INSOMNIA
     Dosage: Dose: 10 (NOS).
     Route: 065
     Dates: start: 20110301, end: 20120124
  2. ALCOHOL [Suspect]
     Indication: DRUG USE FOR UNKNOWN INDICATION
     Route: 065
  3. DIAZEPAM [Concomitant]
     Indication: ANXIETY
     Dosage: Dose: 5 (NOS). As required.
     Route: 048
     Dates: start: 20000910
  4. OMEPRAZOLE [Concomitant]
     Indication: DYSPEPSIA
     Dosage: Dose: 20 (NOS).
     Route: 048
     Dates: start: 20111027

REACTIONS (5)
  - Hostility [Recovered/Resolved]
  - Somnambulism [Recovered/Resolved]
  - Disorientation [Recovered/Resolved]
  - Agitation [Recovered/Resolved]
  - Amnesia [Recovered/Resolved]
